FAERS Safety Report 9557500 (Version 1)
Quarter: 2013Q3

REPORT INFORMATION
  Report Type: Spontaneous
  Country: US (occurrence: None)
  Receive Date: 20130726
  Receipt Date: 20130726
  Transmission Date: 20140515
  Serious: Yes (Hospitalization)
  Sender: FDA-Public Use
  Company Number: UTC-020278

PATIENT
  Age: 59 Year
  Sex: Female

DRUGS (5)
  1. REMODULIN [Suspect]
     Dosage: 1 IN 1 MIN.
     Dates: end: 2006
  2. PROCARDIA (NIFEDIPINE) [Concomitant]
  3. ACTEMRA (TOCILIZUMAB) [Concomitant]
  4. MTX (METHOTREXATE) [Concomitant]
  5. COUMADIN (WARFARIN SODIUM) [Concomitant]

REACTIONS (1)
  - Pulmonary hypertension [None]
